FAERS Safety Report 5094235-5 (Version None)
Quarter: 2006Q3

REPORT INFORMATION
  Report Type: 
  Country: None (occurrence: None)
  Receive Date: 20060830
  Receipt Date: 20060830
  Transmission Date: 20061208
  Serious: Yes (Hospitalization, Disabling, Other)
  Sender: FDA-Public Use
  Company Number: None

PATIENT
  Age: 85 Year
  Sex: Male
  Weight: 61.7 kg

DRUGS (2)
  1. SIMVASTATIN [Suspect]
     Indication: HYPERLIPIDAEMIA
     Dosage: 40 MG DAILY PO
     Route: 048
     Dates: start: 20060101, end: 20060724
  2. VORICONAZOLE 150 MG [Suspect]
     Indication: CANDIDIASIS
     Dosage: 150 MG BID PO
     Route: 048
     Dates: start: 20060101, end: 20060724

REACTIONS (3)
  - ASTHENIA [None]
  - BLOOD CREATINE PHOSPHOKINASE INCREASED [None]
  - LIVER FUNCTION TEST ABNORMAL [None]
